FAERS Safety Report 15515775 (Version 2)
Quarter: 2018Q4

REPORT INFORMATION
  Report Type: Spontaneous
  Country: GB (occurrence: GB)
  Receive Date: 20181017
  Receipt Date: 20181101
  Transmission Date: 20190205
  Serious: Yes (Other)
  Sender: FDA-Public Use
  Company Number: GB-AUROBINDO-AUR-APL-2018-050388

PATIENT
  Age: 76 Year
  Sex: Female
  Weight: 60 kg

DRUGS (9)
  1. CO-AMOXICLAV [Suspect]
     Active Substance: AMOXICILLIN\CLAVULANATE POTASSIUM
     Indication: ABDOMINAL ABSCESS
     Dosage: 625 MILLIGRAM, UNK
     Route: 065
     Dates: start: 20180813, end: 20180817
  2. CO-AMOXICLAV [Suspect]
     Active Substance: AMOXICILLIN\CLAVULANATE POTASSIUM
     Dosage: 1875 MILLIGRAM, ONCE A DAY
     Route: 065
     Dates: start: 20180813, end: 20180817
  3. METRONIDAZOLE. [Suspect]
     Active Substance: METRONIDAZOLE
     Indication: ABDOMINAL ABSCESS
     Dosage: 400 MILLIGRAM
     Route: 065
     Dates: start: 20180813, end: 20180817
  4. REVLIMID [Suspect]
     Active Substance: LENALIDOMIDE
     Dosage: 525 MILLIGRAM, 28 DAYS (25 MILLIGRAM)
     Route: 048
     Dates: start: 201807
  5. REVLIMID [Suspect]
     Active Substance: LENALIDOMIDE
     Dosage: 210 MILLIGRAM, 28 DAYS (10 MILLIGRAMS)
     Route: 048
     Dates: start: 20180913
  6. REVLIMID [Suspect]
     Active Substance: LENALIDOMIDE
     Dosage: 525 MILLIGRAM, 28 DAYS (25 MILLIGRAM)
     Route: 048
     Dates: start: 20180816, end: 20180904
  7. METRONIDAZOLE. [Suspect]
     Active Substance: METRONIDAZOLE
     Dosage: 1200 MILLIGRAM, ONCE A DAY
     Route: 065
     Dates: start: 20180813, end: 20180817
  8. REVLIMID [Suspect]
     Active Substance: LENALIDOMIDE
     Indication: OFF LABEL USE
     Dosage: 15 MILLIGRAM, ONCE A DAY
     Route: 048
     Dates: start: 2018
  9. REVLIMID [Suspect]
     Active Substance: LENALIDOMIDE
     Indication: DIFFUSE LARGE B-CELL LYMPHOMA
     Dosage: 25 MILLIGRAM, DAILY
     Route: 048
     Dates: start: 20180815, end: 20180904

REACTIONS (3)
  - Abdominal abscess [Recovered/Resolved]
  - Rash [Unknown]
  - Liver function test decreased [Recovered/Resolved]

NARRATIVE: CASE EVENT DATE: 2018
